FAERS Safety Report 11790149 (Version 1)
Quarter: 2015Q4

REPORT INFORMATION
  Report Type: Report from Study
  Country: JP (occurrence: JP)
  Receive Date: 20151201
  Receipt Date: 20151201
  Transmission Date: 20160305
  Serious: Yes (Hospitalization, Other)
  Sender: FDA-Public Use
  Company Number: JP-GILEAD-2015-0184541

PATIENT
  Age: 15 Year
  Sex: Female

DRUGS (10)
  1. AMBRISENTAN [Suspect]
     Active Substance: AMBRISENTAN
     Dosage: UNK UNK, BID
     Route: 048
     Dates: start: 20130327
  2. ADCIRCA [Concomitant]
     Active Substance: TADALAFIL
     Indication: PULMONARY ARTERIAL HYPERTENSION
     Dosage: UNK
  3. FERROMIA [Concomitant]
     Active Substance: FERROUS CITRATE
     Indication: ANAEMIA PROPHYLAXIS
     Dosage: UNK
     Dates: start: 20140415
  4. AMBRISENTAN [Suspect]
     Active Substance: AMBRISENTAN
     Indication: PULMONARY ARTERIAL HYPERTENSION
     Dosage: 5 MG, QD
     Route: 048
     Dates: start: 20130226, end: 20130326
  5. WARFARIN [Concomitant]
     Active Substance: WARFARIN
     Indication: PULMONARY ARTERIAL HYPERTENSION
     Dosage: UNK
  6. FLOLAN [Suspect]
     Active Substance: EPOPROSTENOL SODIUM
     Dosage: 28.5NG/KG/MIN
     Route: 042
  7. ALDACTONE A [Concomitant]
     Active Substance: SPIRONOLACTONE
     Indication: PULMONARY ARTERIAL HYPERTENSION
     Dosage: UNK
  8. DIGOSIN [Concomitant]
     Active Substance: DIGOXIN
     Indication: PULMONARY ARTERIAL HYPERTENSION
     Dosage: UNK
  9. FLOLAN [Suspect]
     Active Substance: EPOPROSTENOL SODIUM
     Indication: PULMONARY ARTERIAL HYPERTENSION
     Dosage: 27NG/KG/MIN
     Route: 042
     Dates: start: 20070320
  10. FUROSEMIDE. [Concomitant]
     Active Substance: FUROSEMIDE
     Indication: PULMONARY ARTERIAL HYPERTENSION
     Dosage: UNK

REACTIONS (4)
  - Haemoptysis [Recovered/Resolved]
  - Off label use [Not Recovered/Not Resolved]
  - Diarrhoea [Unknown]
  - Cardiac failure [Not Recovered/Not Resolved]

NARRATIVE: CASE EVENT DATE: 20130226
